FAERS Safety Report 10010068 (Version 2)
Quarter: 2014Q2

REPORT INFORMATION
  Report Type: Spontaneous
  Country: US (occurrence: US)
  Receive Date: 20140312
  Receipt Date: 20140611
  Transmission Date: 20141212
  Serious: No
  Sender: FDA-Public Use
  Company Number: US-INCYTE CORPORATION-2013IN001033

PATIENT
  Sex: Female

DRUGS (16)
  1. JAKAFI [Suspect]
     Indication: MYELOFIBROSIS
     Dosage: 5 MG, BID
     Route: 048
     Dates: start: 201304, end: 201304
  2. ANTI-PARKINSON DRUGS [Suspect]
  3. CANNABIS [Suspect]
  4. MULTIVITAMINS, PLAIN [Concomitant]
  5. ATACAND [Concomitant]
  6. NORVASC [Concomitant]
  7. SYNTHROID [Concomitant]
  8. DETROL LA [Concomitant]
  9. OMEPRAZOLE [Concomitant]
  10. VITAMIN D [Concomitant]
  11. ADVAIR [Concomitant]
  12. SPIRIVA [Concomitant]
  13. ALBUTEROL [Concomitant]
  14. CALCIUM [Concomitant]
  15. ASPIRIN [Concomitant]
  16. RECLAST [Concomitant]

REACTIONS (5)
  - Nausea [Unknown]
  - Decreased appetite [Unknown]
  - Weight decreased [Unknown]
  - Vertigo [Unknown]
  - Dizziness [Recovered/Resolved]
